FAERS Safety Report 4920731-4 (Version None)
Quarter: 2006Q1

REPORT INFORMATION
  Report Type: 
  Country: None (occurrence: None)
  Receive Date: 20060223
  Receipt Date: 20060203
  Transmission Date: 20060701
  Serious: Yes (Hospitalization)
  Sender: FDA-Public Use
  Company Number: GB-BOEHRINGER INGELHEIM PHARMACEUTICALS, INC.-2006-UK-00409UK

PATIENT
  Age: 60 Year
  Sex: Female

DRUGS (4)
  1. ALUPENT [Suspect]
     Indication: INFECTION
  2. PHENYTOIN SODIUM CAP [Suspect]
     Indication: EPILEPSY
     Route: 048
  3. ERYTHROMYCIN [Suspect]
  4. ORCIPRENALINE [Concomitant]
     Route: 065

REACTIONS (3)
  - ANTICONVULSANT DRUG LEVEL INCREASED [None]
  - DRUG INTERACTION [None]
  - INFECTION [None]
